FAERS Safety Report 15628932 (Version 1)
Quarter: 2018Q4

REPORT INFORMATION
  Report Type: Spontaneous
  Country: US (occurrence: US)
  Receive Date: 20181116
  Receipt Date: 20181116
  Transmission Date: 20190205
  Serious: No
  Sender: FDA-Public Use
  Company Number: US-PFIZER INC-2018468371

PATIENT
  Age: 66 Year
  Sex: Male

DRUGS (1)
  1. XELJANZ XR [Suspect]
     Active Substance: TOFACITINIB CITRATE
     Dosage: 11 MG, DAILY

REACTIONS (6)
  - Musculoskeletal stiffness [Unknown]
  - Paraesthesia [Unknown]
  - Disease recurrence [Unknown]
  - Therapeutic response unexpected [Unknown]
  - Hypoaesthesia [Unknown]
  - Pre-existing condition improved [Unknown]
